FAERS Safety Report 23448614 (Version 2)
Quarter: 2025Q1

REPORT INFORMATION
  Report Type: Spontaneous
  Country: AU (occurrence: AU)
  Receive Date: 20240127
  Receipt Date: 20250220
  Transmission Date: 20250408
  Serious: Yes (Death, Life-Threatening, Hospitalization)
  Sender: SANDOZ
  Company Number: AU-002147023-NVSC2023AU051936

PATIENT
  Age: 59 Year
  Sex: Female
  Weight: 61.6 kg

DRUGS (82)
  1. CYCLOPHOSPHAMIDE [Suspect]
     Active Substance: CYCLOPHOSPHAMIDE
     Indication: Chemotherapy
     Dosage: 490 MG, QD
     Route: 042
     Dates: start: 20230216, end: 20230218
  2. FLUDARABINE [Suspect]
     Active Substance: FLUDARABINE PHOSPHATE
     Indication: Chemotherapy
     Dosage: 50 MG, QD
     Route: 042
     Dates: start: 20230216, end: 20230218
  3. ACTRAPID [Concomitant]
     Active Substance: INSULIN HUMAN
     Indication: Supportive care
     Route: 065
     Dates: start: 20230303, end: 20230312
  4. ALBUMIN HUMAN [Concomitant]
     Active Substance: ALBUMIN HUMAN
     Indication: Nutritional supplementation
     Route: 065
     Dates: start: 20230307, end: 20230307
  5. ALBUMIN HUMAN [Concomitant]
     Active Substance: ALBUMIN HUMAN
     Route: 065
     Dates: start: 20230309, end: 20230309
  6. ALLOPURINOL [Concomitant]
     Active Substance: ALLOPURINOL
     Indication: Prophylaxis
     Route: 065
     Dates: start: 20221217, end: 20230301
  7. AMLODIPINE [Concomitant]
     Active Substance: AMLODIPINE BESYLATE
     Indication: Hypertension
     Route: 065
     Dates: start: 20230224, end: 20230228
  8. AMLODIPINE [Concomitant]
     Active Substance: AMLODIPINE BESYLATE
     Route: 065
     Dates: start: 20230306, end: 20230306
  9. AMLODIPINE [Concomitant]
     Active Substance: AMLODIPINE BESYLATE
     Route: 065
     Dates: start: 20230307, end: 20230310
  10. AMLODIPINE [Concomitant]
     Active Substance: AMLODIPINE BESYLATE
     Route: 065
     Dates: start: 20230312, end: 20230313
  11. ANAKINRA [Concomitant]
     Active Substance: ANAKINRA
     Indication: Cytokine release syndrome
     Route: 065
     Dates: start: 20230302, end: 20230306
  12. ANAKINRA [Concomitant]
     Active Substance: ANAKINRA
     Route: 065
     Dates: start: 20230308, end: 20230313
  13. BUPRENORPHINE [Concomitant]
     Active Substance: BUPRENORPHINE
     Indication: Analgesic therapy
     Route: 065
     Dates: start: 20230302, end: 20230302
  14. CALCIUM CHLORIDE [Concomitant]
     Active Substance: CALCIUM CHLORIDE
     Indication: Blood calcium increased
     Route: 065
     Dates: start: 20230302, end: 20230302
  15. CALCIUM CHLORIDE [Concomitant]
     Active Substance: CALCIUM CHLORIDE
     Indication: Hypercalcaemia
  16. CEFEPIME [Concomitant]
     Active Substance: CEFEPIME HYDROCHLORIDE
     Indication: Cytokine release syndrome
     Route: 065
     Dates: start: 20230225, end: 20230308
  17. CRYOPRECIPITATED ANTIHEMOPHILIC FACTOR (HUMAN) [Concomitant]
     Active Substance: CRYOPRECIPITATED ANTIHEMOPHILIC FACTOR (HUMAN)
     Indication: Supportive care
     Route: 065
     Dates: start: 20230302, end: 20230302
  18. CRYOPRECIPITATED ANTIHEMOPHILIC FACTOR (HUMAN) [Concomitant]
     Active Substance: CRYOPRECIPITATED ANTIHEMOPHILIC FACTOR (HUMAN)
     Route: 065
     Dates: start: 20230311, end: 20230311
  19. DEXAMETHASONE [Concomitant]
     Active Substance: DEXAMETHASONE
     Indication: Cytokine release syndrome
     Route: 065
     Dates: start: 20230301, end: 20230302
  20. DEXMEDETOMIDINE [Concomitant]
     Active Substance: DEXMEDETOMIDINE
     Indication: Sedative therapy
     Route: 065
     Dates: start: 20230307
  21. FENTANYL [Concomitant]
     Active Substance: FENTANYL
     Indication: Supportive care
     Route: 065
     Dates: start: 20230303, end: 20230303
  22. FENTANYL [Concomitant]
     Active Substance: FENTANYL
     Route: 065
     Dates: start: 20230303, end: 20230310
  23. FUROSEMIDE [Concomitant]
     Active Substance: FUROSEMIDE
     Indication: Hypervolaemia
     Route: 065
     Dates: start: 20230218, end: 20230218
  24. FUROSEMIDE [Concomitant]
     Active Substance: FUROSEMIDE
     Route: 065
     Dates: start: 20230301, end: 20230301
  25. GENTAMICIN [Concomitant]
     Active Substance: GENTAMICIN
     Indication: Neutropenic colitis
     Route: 065
     Dates: start: 20230301, end: 20230301
  26. CALCIUM CHLORIDE\POTASSIUM CHLORIDE\SODIUM LACTATE [Concomitant]
     Active Substance: CALCIUM CHLORIDE\POTASSIUM CHLORIDE\SODIUM LACTATE
     Indication: Fluid retention
     Route: 065
     Dates: start: 20230302, end: 20230306
  27. CALCIUM CHLORIDE\POTASSIUM CHLORIDE\SODIUM LACTATE [Concomitant]
     Active Substance: CALCIUM CHLORIDE\POTASSIUM CHLORIDE\SODIUM LACTATE
     Indication: Fluid replacement
  28. HYDRALAZINE [Concomitant]
     Active Substance: HYDRALAZINE HYDROCHLORIDE
     Indication: Hypertension
     Route: 065
     Dates: start: 20230305, end: 20230309
  29. HYDRALAZINE [Concomitant]
     Active Substance: HYDRALAZINE HYDROCHLORIDE
     Route: 065
     Dates: start: 20230312, end: 20230313
  30. INTRAGAM P [Concomitant]
     Active Substance: HUMAN IMMUNOGLOBULIN G
     Indication: Hypogammaglobulinaemia
     Route: 065
     Dates: start: 20230311, end: 20230311
  31. ITRACONAZOLE [Concomitant]
     Active Substance: ITRACONAZOLE
     Indication: Antifungal prophylaxis
     Route: 065
     Dates: start: 20230307, end: 20230317
  32. KEPPRA [Concomitant]
     Active Substance: LEVETIRACETAM
     Indication: Seizure prophylaxis
     Route: 065
     Dates: start: 20230302, end: 20230303
  33. LEVETIRACETAM [Concomitant]
     Active Substance: LEVETIRACETAM
     Indication: Seizure prophylaxis
     Route: 065
     Dates: start: 20230302, end: 20230303
  34. LEVETIRACETAM [Concomitant]
     Active Substance: LEVETIRACETAM
     Route: 065
     Dates: start: 20230303, end: 20230317
  35. LORATADINE [Concomitant]
     Active Substance: LORATADINE
     Indication: Rash
     Route: 065
     Dates: start: 20230222, end: 20230222
  36. MAGNESIUM ASPARTATE [Concomitant]
     Active Substance: MAGNESIUM ASPARTATE
     Indication: Supplementation therapy
     Route: 065
     Dates: start: 20230225, end: 20230301
  37. MAGNESIUM SULFATE [Concomitant]
     Active Substance: MAGNESIUM SULFATE
     Indication: Mineral supplementation
     Route: 065
     Dates: start: 20230224, end: 20230225
  38. MAGNESIUM SULFATE [Concomitant]
     Active Substance: MAGNESIUM SULFATE
     Route: 065
     Dates: start: 20230302, end: 20230317
  39. MAXOLON [Concomitant]
     Active Substance: METOCLOPRAMIDE HYDROCHLORIDE
     Indication: Prophylaxis of nausea and vomiting
     Route: 065
     Dates: start: 20230225, end: 20230225
  40. MAXOLON [Concomitant]
     Active Substance: METOCLOPRAMIDE HYDROCHLORIDE
     Indication: Prophylaxis of nausea and vomiting
  41. METOCLOPRAMIDE [Concomitant]
     Active Substance: METOCLOPRAMIDE
     Indication: Prophylaxis of nausea and vomiting
     Route: 065
     Dates: start: 20230216, end: 20230301
  42. METRONIDAZOLE [Concomitant]
     Active Substance: METRONIDAZOLE
     Indication: Neutropenic colitis
     Route: 065
     Dates: start: 20230301, end: 20230302
  43. METRONIDAZOLE [Concomitant]
     Active Substance: METRONIDAZOLE
     Indication: Neutropenic colitis
     Route: 065
     Dates: start: 20230302, end: 20230308
  44. METRONIDAZOLE [Concomitant]
     Active Substance: METRONIDAZOLE
     Indication: Cytokine release syndrome
  45. MIDAZOLAM [Concomitant]
     Active Substance: MIDAZOLAM
     Indication: Agitation postoperative
     Route: 065
     Dates: start: 20230302, end: 20230302
  46. MIDAZOLAM [Concomitant]
     Active Substance: MIDAZOLAM
     Route: 065
     Dates: start: 20230303, end: 20230303
  47. MIDAZOLAM [Concomitant]
     Active Substance: MIDAZOLAM
     Route: 065
     Dates: start: 20230307, end: 20230307
  48. MIDAZOLAM [Concomitant]
     Active Substance: MIDAZOLAM
     Route: 065
     Dates: start: 20230312, end: 20230317
  49. NOREPINEPHRINE BITARTRATE [Concomitant]
     Active Substance: NOREPINEPHRINE BITARTRATE
     Indication: Supportive care
     Route: 065
     Dates: start: 20230302, end: 20230317
  50. NOREPINEPHRINE BITARTRATE [Concomitant]
     Active Substance: NOREPINEPHRINE BITARTRATE
     Route: 065
     Dates: start: 20230303, end: 20230304
  51. ONDANSETRON [Concomitant]
     Active Substance: ONDANSETRON
     Indication: Prophylaxis of nausea and vomiting
     Route: 065
     Dates: start: 20230227, end: 20230227
  52. PAMIDRONATE DISODIUM [Concomitant]
     Active Substance: PAMIDRONATE DISODIUM
     Indication: Prophylaxis
     Route: 065
     Dates: start: 20230224, end: 20230224
  53. PANTOPRAZOLE [Concomitant]
     Active Substance: PANTOPRAZOLE
     Indication: Gastrooesophageal reflux prophylaxis
     Route: 065
     Dates: start: 202009
  54. PANTOPRAZOLE [Concomitant]
     Active Substance: PANTOPRAZOLE
     Route: 065
     Dates: start: 20230216, end: 20230301
  55. PANTOPRAZOLE [Concomitant]
     Active Substance: PANTOPRAZOLE
     Route: 065
     Dates: start: 20230303, end: 20230317
  56. ACETAMINOPHEN [Concomitant]
     Active Substance: ACETAMINOPHEN
     Indication: Analgesic therapy
     Route: 065
     Dates: start: 20230222, end: 20230317
  57. PENTAMIDINE [Concomitant]
     Active Substance: PENTAMIDINE
     Indication: Antifungal prophylaxis
     Route: 065
     Dates: start: 20230219, end: 20230219
  58. PHYTONADIONE [Concomitant]
     Active Substance: PHYTONADIONE
     Indication: Supportive care
     Route: 065
     Dates: start: 20230302, end: 20230304
  59. PLASMA-LYTE 148 [Concomitant]
     Active Substance: MAGNESIUM CHLORIDE\POTASSIUM CHLORIDE\SODIUM ACETATE\SODIUM CHLORIDE\SODIUM GLUCONATE
     Indication: Supportive care
     Route: 065
     Dates: start: 20230302, end: 20230302
  60. PLASMA-LYTE 148 [Concomitant]
     Active Substance: MAGNESIUM CHLORIDE\POTASSIUM CHLORIDE\SODIUM ACETATE\SODIUM CHLORIDE\SODIUM GLUCONATE
     Route: 065
     Dates: start: 20230311, end: 20230311
  61. POTASSIUM CHLORIDE [Concomitant]
     Active Substance: POTASSIUM CHLORIDE
     Indication: Mineral supplementation
     Route: 065
     Dates: start: 20230225, end: 20230301
  62. POTASSIUM CHLORIDE [Concomitant]
     Active Substance: POTASSIUM CHLORIDE
     Route: 065
     Dates: start: 20230302, end: 20230303
  63. POTASSIUM PHOSPHATE, MONOBASIC [Concomitant]
     Active Substance: POTASSIUM PHOSPHATE, MONOBASIC
     Indication: Mineral supplementation
     Route: 065
     Dates: start: 20230302, end: 20230302
  64. POTASSIUM PHOSPHATE, MONOBASIC [Concomitant]
     Active Substance: POTASSIUM PHOSPHATE, MONOBASIC
     Indication: Supportive care
     Route: 065
     Dates: start: 20230309, end: 20230309
  65. PROPOFOL [Concomitant]
     Active Substance: PROPOFOL
     Indication: Sedative therapy
     Route: 065
     Dates: start: 20230302, end: 20230302
  66. PROPOFOL [Concomitant]
     Active Substance: PROPOFOL
     Route: 065
     Dates: start: 20230303, end: 20230303
  67. PROPOFOL [Concomitant]
     Active Substance: PROPOFOL
     Route: 065
     Dates: start: 20230305, end: 20230305
  68. PROPOFOL [Concomitant]
     Active Substance: PROPOFOL
     Route: 065
     Dates: start: 20230305, end: 20230310
  69. PROPOFOL [Concomitant]
     Active Substance: PROPOFOL
     Route: 065
     Dates: start: 20230311, end: 20230311
  70. RITONAVIR [Concomitant]
     Active Substance: RITONAVIR
     Indication: Product used for unknown indication
     Route: 065
     Dates: start: 20230221, end: 20230221
  71. ROCURONIUM [Concomitant]
     Active Substance: ROCURONIUM BROMIDE
     Indication: Sedation
     Route: 065
     Dates: start: 20230303, end: 20230303
  72. SODIUM BICARBONATE [Concomitant]
     Active Substance: SODIUM BICARBONATE
     Indication: Supportive care
     Route: 065
     Dates: start: 20230302, end: 20230302
  73. SODIUM BICARBONATE [Concomitant]
     Active Substance: SODIUM BICARBONATE
     Route: 065
     Dates: start: 20230303, end: 20230303
  74. SODIUM CHLORIDE [Concomitant]
     Active Substance: SODIUM CHLORIDE
     Indication: Hypercalcaemia
     Route: 065
     Dates: start: 20230215, end: 20230226
  75. TOCILIZUMAB [Concomitant]
     Active Substance: TOCILIZUMAB
     Indication: Cytokine release syndrome
     Route: 065
     Dates: start: 20230228, end: 20230228
  76. TOCILIZUMAB [Concomitant]
     Active Substance: TOCILIZUMAB
     Route: 065
     Dates: start: 20230228, end: 20230301
  77. TOCILIZUMAB [Concomitant]
     Active Substance: TOCILIZUMAB
     Route: 065
     Dates: start: 20230301, end: 20230301
  78. SULFAMETHOXAZOLE\TRIMETHOPRIM [Concomitant]
     Active Substance: SULFAMETHOXAZOLE\TRIMETHOPRIM
     Indication: Antifungal prophylaxis
     Route: 065
     Dates: start: 202009
  79. VALACYCLOVIR HYDROCHLORIDE [Concomitant]
     Active Substance: VALACYCLOVIR HYDROCHLORIDE
     Indication: Antiviral prophylaxis
     Route: 065
     Dates: start: 20230216, end: 20230301
  80. VALACYCLOVIR HYDROCHLORIDE [Concomitant]
     Active Substance: VALACYCLOVIR HYDROCHLORIDE
     Route: 065
     Dates: start: 20230304, end: 20230317
  81. ZOLEDRONIC ACID [Concomitant]
     Active Substance: ZOLEDRONIC ACID
     Indication: Hypercalcaemia
     Route: 065
     Dates: start: 20230215, end: 20230215
  82. ZOLEDRONIC ACID [Concomitant]
     Active Substance: ZOLEDRONIC ACID
     Route: 065
     Dates: start: 20230217, end: 20230217

REACTIONS (4)
  - Sepsis [Fatal]
  - Enterococcal sepsis [Fatal]
  - Immune effector cell-associated neurotoxicity syndrome [Not Recovered/Not Resolved]
  - Neutropenic colitis [Not Recovered/Not Resolved]

NARRATIVE: CASE EVENT DATE: 20230301
